FAERS Safety Report 9011754 (Version 1)
Quarter: 2013Q1

REPORT INFORMATION
  Report Type: Spontaneous
  Country: US (occurrence: US)
  Receive Date: 20130113
  Receipt Date: 20130113
  Transmission Date: 20140127
  Serious: Yes (Other)
  Sender: FDA-Public Use
  Company Number: US-009507513-0901USA02252

PATIENT
  Age: 5 Year
  Sex: Female
  Weight: 19.96 kg

DRUGS (2)
  1. SINGULAIR [Suspect]
     Indication: BRONCHIAL HYPERREACTIVITY
     Dosage: 4 MG, QD
     Route: 048
  2. SINGULAIR [Suspect]
     Indication: RHINITIS ALLERGIC

REACTIONS (7)
  - Abnormal behaviour [Unknown]
  - Abnormal dreams [Unknown]
  - Aggression [Unknown]
  - Conversion disorder [Unknown]
  - Crying [Unknown]
  - Poor quality sleep [Unknown]
  - Screaming [Unknown]
